FAERS Safety Report 7251570-X (Version None)
Quarter: 2011Q1

REPORT INFORMATION
  Report Type: 
  Country: None (occurrence: None)
  Receive Date: 20110128
  Receipt Date: 20110118
  Transmission Date: 20110831
  Serious: Yes (Life-Threatening, Hospitalization, Other)
  Sender: FDA-Public Use
  Company Number: FR-PFIZER INC-2011019622

PATIENT
  Age: 81 Year
  Sex: Female

DRUGS (8)
  1. EXELON [Interacting]
     Dosage: UNK
     Dates: end: 20100527
  2. GLYCERYL TRINITRATE [Concomitant]
  3. ATENOLOL [Interacting]
     Dosage: 50 MG, 1X/DAY
     Dates: start: 20100526, end: 20100527
  4. CORDARONE [Suspect]
     Dosage: UNK
     Dates: end: 20100527
  5. COUMADIN [Concomitant]
  6. ROCEPHIN [Concomitant]
     Dosage: UNK
     Dates: start: 20100521, end: 20100531
  7. LOXEN [Concomitant]
     Dosage: UNK
     Dates: end: 20100527
  8. FUROSEMIDE [Concomitant]
     Dosage: UNK
     Dates: end: 20100527

REACTIONS (4)
  - BRADYCARDIA [None]
  - TORSADE DE POINTES [None]
  - HYPOTHYROIDISM [None]
  - DRUG INTERACTION [None]
